FAERS Safety Report 16624895 (Version 2)
Quarter: 2019Q3

REPORT INFORMATION
  Report Type: Spontaneous
  Country: US (occurrence: US)
  Receive Date: 20190724
  Receipt Date: 20190812
  Transmission Date: 20191004
  Serious: Yes (Other)
  Sender: FDA-Public Use
  Company Number: US-PFIZER INC-2019312428

PATIENT
  Age: 72 Year
  Sex: Female
  Weight: 82.55 kg

DRUGS (11)
  1. POTASSIUM CHLORIDE. [Suspect]
     Active Substance: POTASSIUM CHLORIDE
     Dosage: 20 MEQ, 1X/DAY [20MEQ TABLET TAKEN ONCE DAILY]
  2. NORTRIPTYLINE [Suspect]
     Active Substance: NORTRIPTYLINE
     Dosage: 10 MG, 1X/DAY
  3. SUCRALFATE. [Suspect]
     Active Substance: SUCRALFATE
     Dosage: 1 MG, 4X/DAY
  4. PANTOPRAZOLE [Suspect]
     Active Substance: PANTOPRAZOLE
     Dosage: 40 MG, 1X/DAY
  5. FLECAINIDE [Suspect]
     Active Substance: FLECAINIDE
     Dosage: 400 MG, DAILY [200MG TABLET-2 TABLETS TAKEN DAILY]
  6. METOPROLOL. [Suspect]
     Active Substance: METOPROLOL
     Dosage: 12.5 MG, 1X/DAY (1/2 TABLET (12.5MG) TAKEN ONCE DAILY)
  7. LYRICA [Suspect]
     Active Substance: PREGABALIN
     Indication: FIBROMYALGIA
     Dosage: 300 MG, 2X/DAY [150MG-2 CAPSULES TAKEN BY MOUTH TWICE DAILY]
     Route: 048
  8. ATORVASTATIN CALCIUM. [Suspect]
     Active Substance: ATORVASTATIN CALCIUM
     Dosage: 20 MG, 1X/DAY
  9. VENLAFAXINE HCL [Suspect]
     Active Substance: VENLAFAXINE HYDROCHLORIDE
     Dosage: 75 MG, 1X/DAY
  10. FUROSEMIDE. [Suspect]
     Active Substance: FUROSEMIDE
     Dosage: 40 MG, 1X/DAY [40MG TABLET TAKEN ONCE DAILY]
  11. FAMOTIDINE. [Suspect]
     Active Substance: FAMOTIDINE
     Dosage: 20 MG, 2X/DAY

REACTIONS (1)
  - Mental impairment [Not Recovered/Not Resolved]
